FAERS Safety Report 5603009-5 (Version None)
Quarter: 2008Q1

REPORT INFORMATION
  Report Type: 
  Country: None (occurrence: None)
  Receive Date: 20080125
  Receipt Date: 20080113
  Transmission Date: 20080703
  Serious: Yes (Other)
  Sender: FDA-Public Use
  Company Number: US-PFIZER INC-2007009902

PATIENT
  Sex: Female
  Weight: 72.6 kg

DRUGS (7)
  1. CHANTIX [Suspect]
     Indication: SMOKING CESSATION THERAPY
  2. PAXIL [Concomitant]
  3. KLONOPIN [Concomitant]
  4. PHENELZINE SULFATE [Concomitant]
  5. XANAX [Concomitant]
  6. PHENERGAN VC [Concomitant]
  7. OMEPRAZOLE [Concomitant]

REACTIONS (14)
  - BARRETT'S OESOPHAGUS [None]
  - DECREASED APPETITE [None]
  - DIZZINESS [None]
  - DYSPNOEA [None]
  - EMOTIONAL DISORDER [None]
  - FEELING ABNORMAL [None]
  - HYPERHIDROSIS [None]
  - HYPERSOMNIA [None]
  - INSOMNIA [None]
  - NAUSEA [None]
  - PSYCHOMOTOR HYPERACTIVITY [None]
  - THINKING ABNORMAL [None]
  - TREMOR [None]
  - VOMITING [None]
